FAERS Safety Report 10518273 (Version 1)
Quarter: 2014Q4

REPORT INFORMATION
  Report Type: Spontaneous
  Country: US (occurrence: None)
  Receive Date: 20141014
  Receipt Date: 20141014
  Transmission Date: 20150528
  Serious: Yes (Death, Hospitalization)
  Sender: FDA-Public Use
  Company Number: None

PATIENT
  Age: 31 Year
  Sex: Female
  Weight: 69 kg

DRUGS (1)
  1. DAUNORUBICIN [Suspect]
     Active Substance: DAUNORUBICIN
     Dates: end: 20140930

REACTIONS (6)
  - Hepatic failure [None]
  - Hypotension [None]
  - Renal failure [None]
  - Respiratory distress [None]
  - Ventricular tachycardia [None]
  - Multi-organ failure [None]

NARRATIVE: CASE EVENT DATE: 20141011
